FAERS Safety Report 6758882-4 (Version None)
Quarter: 2010Q2

REPORT INFORMATION
  Report Type: 
  Country: None (occurrence: None)
  Receive Date: 20100607
  Receipt Date: 20100527
  Transmission Date: 20101027
  Serious: Yes (Hospitalization)
  Sender: FDA-Public Use
  Company Number: PHHO2005US15196

PATIENT
  Sex: Male
  Weight: 71.3 kg

DRUGS (4)
  1. CERTICAN [Suspect]
     Indication: RENAL TRANSPLANT
     Dosage: 0.5 MG, BID
     Route: 048
     Dates: start: 20040930
  2. NEORAL [Interacting]
     Indication: RENAL TRANSPLANT
     Dosage: 125MG/DAILY
     Dates: start: 19981118
  3. BIAXIN [Interacting]
  4. DELTASONE [Concomitant]
     Indication: RENAL TRANSPLANT
     Dosage: 10MG/DAILY

REACTIONS (5)
  - HEADACHE [None]
  - MUSCULOSKELETAL STIFFNESS [None]
  - NEPHROPATHY TOXIC [None]
  - OROPHARYNGEAL PAIN [None]
  - RENAL FAILURE ACUTE [None]
